FAERS Safety Report 6023710-1 (Version None)
Quarter: 2008Q4

REPORT INFORMATION
  Report Type: 
  Country: None (occurrence: None)
  Receive Date: 20081226
  Receipt Date: 20081226
  Transmission Date: 20090506
  Serious: No
  Sender: FDA-Public Use
  Company Number: None

PATIENT
  Age: 25 Year
  Sex: Female
  Weight: 44.4525 kg

DRUGS (1)
  1. DIFFERIN [Suspect]

REACTIONS (1)
  - EYELID OEDEMA [None]
